FAERS Safety Report 20987112 (Version 2)
Quarter: 2023Q2

REPORT INFORMATION
  Report Type: Spontaneous
  Country: US (occurrence: US)
  Receive Date: 20220621
  Receipt Date: 20230424
  Transmission Date: 20230722
  Serious: Yes (Other)
  Sender: FDA-Public Use
  Company Number: US-PFIZER INC-PV202200002993

PATIENT
  Age: 12 Year
  Sex: Female

DRUGS (1)
  1. PENICILLIN G BENZATHINE [Suspect]
     Active Substance: PENICILLIN G BENZATHINE
     Indication: Beta haemolytic streptococcal infection
     Dosage: 1.2 MILLION UNITS

REACTIONS (1)
  - Hoigne^s syndrome [Recovering/Resolving]
